FAERS Safety Report 8382935-0 (Version None)
Quarter: 2012Q2

REPORT INFORMATION
  Report Type: 
  Country: None (occurrence: None)
  Receive Date: 20120524
  Receipt Date: 20120521
  Transmission Date: 20120825
  Serious: Yes (Death, Life-Threatening)
  Sender: FDA-Public Use
  Company Number: JP-B.I. PHARMACEUTICALS,INC./RIDGEFIELD-2011-BP-25113NB

PATIENT
  Sex: Male
  Weight: 52 kg

DRUGS (2)
  1. PRADAXA [Suspect]
     Dosage: 300 MG
     Route: 048
     Dates: start: 20110520, end: 20111027
  2. EXFORGE [Concomitant]
     Indication: HYPERTENSION
     Route: 048
     Dates: start: 20110128

REACTIONS (6)
  - CARDIO-RESPIRATORY ARREST [None]
  - PULMONARY ALVEOLAR HAEMORRHAGE [None]
  - COUGH [None]
  - RIB FRACTURE [None]
  - ANAEMIA [None]
  - PORTAL VENOUS GAS [None]
